FAERS Safety Report 6062695-9 (Version None)
Quarter: 2009Q1

REPORT INFORMATION
  Report Type: 
  Country: None (occurrence: None)
  Receive Date: 20090203
  Receipt Date: 20090128
  Transmission Date: 20090719
  Serious: Yes (Hospitalization, Other)
  Sender: FDA-Public Use
  Company Number: PHHO2007US14627

PATIENT
  Sex: Male
  Weight: 82.6 kg

DRUGS (10)
  1. PLACEBO COMP-PLA+ [Suspect]
     Indication: MENINGITIS CRYPTOCOCCAL
     Dosage: UNK
     Route: 042
     Dates: start: 20070420, end: 20070426
  2. METOPROLOL TARTRATE [Suspect]
  3. LISINOPRIL [Suspect]
  4. NIFEDIPINE [Suspect]
  5. AMPHOTERICIN B [Concomitant]
     Dates: start: 20070401
  6. FLUCYTOSINE [Concomitant]
     Dates: start: 20070401
  7. ASPIRIN [Concomitant]
  8. TERAZOSIN HCL [Concomitant]
  9. PROTONIX [Concomitant]
  10. DIFLUCAN [Concomitant]

REACTIONS (4)
  - BLOOD POTASSIUM DECREASED [None]
  - DIZZINESS POSTURAL [None]
  - DYSPHAGIA [None]
  - HYPOTENSION [None]
